FAERS Safety Report 10235064 (Version 2)
Quarter: 2014Q3

REPORT INFORMATION
  Report Type: Spontaneous
  Country: JP (occurrence: JP)
  Receive Date: 20140613
  Receipt Date: 20140717
  Transmission Date: 20150326
  Serious: Yes (Hospitalization)
  Sender: FDA-Public Use
  Company Number: PHHY2014JP072597

PATIENT
  Age: 87 Year
  Sex: Female

DRUGS (1)
  1. LOCHOL [Suspect]
     Active Substance: FLUVASTATIN SODIUM
     Dosage: 20 MG, DAILY IN MORNING
     Route: 048

REACTIONS (1)
  - Bladder neoplasm [Unknown]
